FAERS Safety Report 14241582 (Version 1)
Quarter: 2017Q4

REPORT INFORMATION
  Report Type: Spontaneous
  Country: IT (occurrence: FR)
  Receive Date: 20171201
  Receipt Date: 20171201
  Transmission Date: 20180321
  Serious: Yes (Other)
  Sender: FDA-Public Use
  Company Number: FR-MERCK KGAA-2036439

PATIENT
  Sex: Male
  Weight: 4 kg

DRUGS (2)
  1. NOVOTHYROX [Suspect]
     Active Substance: LEVOTHYROXINE SODIUM
     Indication: HYPOTHYROIDISM
     Route: 048
  2. GILENYA [Suspect]
     Active Substance: FINGOLIMOD HYDROCHLORIDE
     Route: 048
     Dates: start: 20150513, end: 20170105

REACTIONS (2)
  - Foetal exposure during pregnancy [Recovered/Resolved]
  - Large for dates baby [Unknown]

NARRATIVE: CASE EVENT DATE: 20170909
